FAERS Safety Report 6245329-X (Version None)
Quarter: 2009Q2

REPORT INFORMATION
  Report Type: 
  Country: None (occurrence: None)
  Receive Date: 20090625
  Receipt Date: 20090618
  Transmission Date: 20091009
  Serious: Yes (Death, Life-Threatening, Hospitalization, Other)
  Sender: FDA-Public Use
  Company Number: DE-ELI_LILLY_AND_COMPANY-DE200902007610

PATIENT
  Age: 64 Year
  Sex: Male

DRUGS (3)
  1. ALIMTA [Suspect]
     Indication: NON-SMALL CELL LUNG CANCER
     Dosage: 500 MG, UNKNOWN
     Route: 042
     Dates: start: 20090113, end: 20090210
  2. FOLIC ACID [Concomitant]
  3. VITAMIN B-12 [Concomitant]

REACTIONS (9)
  - ANAEMIA [None]
  - BONE MARROW FAILURE [None]
  - EPISTAXIS [None]
  - GENERAL PHYSICAL HEALTH DETERIORATION [None]
  - HICCUPS [None]
  - MALIGNANT NEOPLASM PROGRESSION [None]
  - MUCOSAL INFLAMMATION [None]
  - PANCYTOPENIA [None]
  - TUMOUR PAIN [None]
